FAERS Safety Report 9848450 (Version 2)
Quarter: 2014Q1

REPORT INFORMATION
  Report Type: Spontaneous
  Country: US (occurrence: US)
  Receive Date: 20140128
  Receipt Date: 20140128
  Transmission Date: 20141002
  Serious: Yes (Hospitalization, Other)
  Sender: FDA-Public Use
  Company Number: US-BEH-2011029334

PATIENT
  Age: 48 Year
  Sex: Male
  Weight: 121 kg

DRUGS (30)
  1. ZEMAIRA [Suspect]
     Indication: ALPHA-1 ANTI-TRYPSIN DEFICIENCY
     Dosage: INFUSED 0.08 ML/KG/MIN (9.9ML/MIN)
     Route: 042
     Dates: start: 20100127
  2. ZEMAIRA [Suspect]
     Dosage: ??-???-2011
     Route: 042
  3. ZEMAIRA [Suspect]
  4. ZEMAIRA [Suspect]
     Dates: start: 20111018, end: 20111018
  5. COREG [Concomitant]
  6. POTASSIUM [Concomitant]
  7. LANTUS [Concomitant]
  8. LISINOPRIL-HCTZ [Concomitant]
  9. ZANTAC [Concomitant]
  10. HYDRALAZINE [Concomitant]
  11. HYDROCODONE-APAP [Concomitant]
  12. PROZAC [Concomitant]
  13. CARDIZEM [Concomitant]
  14. DUONEB [Concomitant]
  15. VANCOMYCIN [Concomitant]
  16. IBUPROFEN [Concomitant]
  17. MIRALAX [Concomitant]
  18. DIPHENHYDRAMINE [Concomitant]
  19. HEPARIN [Concomitant]
  20. SODIUM CHLORIDE [Concomitant]
  21. EPI-PEN [Concomitant]
  22. LMX [Concomitant]
  23. CATHFLO ACTIVASE [Concomitant]
  24. DILTIAZEM [Concomitant]
  25. SERTRALINE [Concomitant]
  26. CLONIDINE [Concomitant]
  27. BYSTOLIC [Concomitant]
  28. SPIRONOLACTONE [Concomitant]
  29. OXYGEN [Concomitant]
  30. SENOKOT [Concomitant]

REACTIONS (8)
  - Sepsis [Recovered/Resolved]
  - Infection [Recovered/Resolved]
  - Hypertension [Unknown]
  - Blood pressure increased [Unknown]
  - Oedema [Unknown]
  - Skin ulcer [Unknown]
  - Sensory loss [Unknown]
  - Nerve compression [Unknown]
